FAERS Safety Report 10040669 (Version 3)
Quarter: 2018Q4

REPORT INFORMATION
  Report Type: Spontaneous
  Country: US (occurrence: US)
  Receive Date: 20140327
  Receipt Date: 20181213
  Transmission Date: 20190204
  Serious: Yes (Other)
  Sender: FDA-Public Use
  Company Number: US-TEVA-471281USA

PATIENT
  Age: 37 Year
  Sex: Female
  Weight: 77.18 kg

DRUGS (1)
  1. PARAGARD T 380A [Suspect]
     Active Substance: COPPER
     Indication: CONTRACEPTION
     Route: 015
     Dates: start: 20120927

REACTIONS (6)
  - Abortion induced [Unknown]
  - Maternal exposure during pregnancy [Unknown]
  - Embedded device [Unknown]
  - Pregnancy [Unknown]
  - Drug ineffective [Unknown]
  - Menstruation delayed [Unknown]

NARRATIVE: CASE EVENT DATE: 201403
